FAERS Safety Report 9312154 (Version 1)
Quarter: 2013Q2

REPORT INFORMATION
  Report Type: Spontaneous
  Country: IT (occurrence: IT)
  Receive Date: 20130528
  Receipt Date: 20130528
  Transmission Date: 20140414
  Serious: Yes (Other)
  Sender: FDA-Public Use
  Company Number: IT-PFIZER INC-2013160237

PATIENT
  Age: 45 Year
  Sex: Male

DRUGS (1)
  1. XANAX [Suspect]
     Indication: DEPRESSION
     Dosage: UNK
     Dates: start: 20130201, end: 20130402

REACTIONS (2)
  - Overdose [Unknown]
  - Poisoning [Recovering/Resolving]
